FAERS Safety Report 18289451 (Version 1)
Quarter: 2020Q3

REPORT INFORMATION
  Report Type: Spontaneous
  Country: US (occurrence: US)
  Receive Date: 20200921
  Receipt Date: 20200921
  Transmission Date: 20201103
  Serious: Yes (Hospitalization)
  Sender: FDA-Public Use
  Company Number: None

PATIENT
  Sex: Female

DRUGS (10)
  1. METOPROLOL. [Concomitant]
     Active Substance: METOPROLOL
  2. VITAMIN C [Concomitant]
     Active Substance: ASCORBIC ACID
  3. XELJANZ [Suspect]
     Active Substance: TOFACITINIB CITRATE
     Indication: GRANULOMA ANNULARE
     Route: 048
     Dates: start: 20200714
  4. GLUCOSAMINE [Concomitant]
     Active Substance: GLUCOSAMINE
  5. CYCLOBENZAPR [Concomitant]
     Active Substance: CYCLOBENZAPRINE
  6. MILK THISTLE [Concomitant]
     Active Substance: DIETARY SUPPLEMENT\HERBALS\MILK THISTLE
  7. ACTONEL [Concomitant]
     Active Substance: RISEDRONATE SODIUM
  8. CALCIUM [Concomitant]
     Active Substance: CALCIUM
  9. VITAMIN B12 [Concomitant]
     Active Substance: CYANOCOBALAMIN
  10. LINZESS [Concomitant]
     Active Substance: LINACLOTIDE

REACTIONS (1)
  - Rib fracture [None]
